FAERS Safety Report 8083247-5 (Version None)
Quarter: 2012Q1

REPORT INFORMATION
  Report Type: 
  Country: None (occurrence: None)
  Receive Date: 20120127
  Receipt Date: 20110303
  Transmission Date: 20120608
  Serious: No
  Sender: FDA-Public Use
  Company Number: US-ABBOTT-11P-163-0708996-00

PATIENT
  Age: 17 Year
  Sex: Female

DRUGS (2)
  1. HUMIRA [Suspect]
     Indication: CROHN'S DISEASE
     Dates: start: 20100701
  2. BIRTH CONTROL PILL: THINKS IT IS LO OVRAL [Concomitant]
     Indication: CONTRACEPTION

REACTIONS (4)
  - DEVICE MALFUNCTION [None]
  - NASOPHARYNGITIS [None]
  - RASH PAPULAR [None]
  - PRURITUS [None]
